FAERS Safety Report 12837867 (Version 7)
Quarter: 2017Q1

REPORT INFORMATION
  Report Type: Report from Study
  Country: US (occurrence: US)
  Receive Date: 20161012
  Receipt Date: 20170315
  Transmission Date: 20170428
  Serious: Yes (Hospitalization, Other)
  Sender: FDA-Public Use
  Company Number: US-GILEAD-2016-0237496

PATIENT
  Age: 66 Year
  Sex: Female

DRUGS (20)
  1. AMBRISENTAN [Suspect]
     Active Substance: AMBRISENTAN
     Indication: PULMONARY ARTERIAL HYPERTENSION
     Dosage: 5 MG, QD
     Route: 065
     Dates: start: 20130722
  2. AMLODIPINE BESYLATE. [Concomitant]
     Active Substance: AMLODIPINE BESYLATE
  3. SILDENAFIL. [Concomitant]
     Active Substance: SILDENAFIL
  4. FUROSEMIDE. [Concomitant]
     Active Substance: FUROSEMIDE
  5. GLIPIZIDE. [Concomitant]
     Active Substance: GLIPIZIDE
  6. ALPRAZOLAM. [Concomitant]
     Active Substance: ALPRAZOLAM
  7. JANUVIA [Concomitant]
     Active Substance: SITAGLIPTIN PHOSPHATE
  8. ALLOPURINOL. [Concomitant]
     Active Substance: ALLOPURINOL
  9. ACETAMINOPHEN AND CODEINE [Concomitant]
     Active Substance: ACETAMINOPHEN\CODEINE PHOSPHATE
  10. GLYBURIDE. [Concomitant]
     Active Substance: GLYBURIDE
  11. LISINOPRIL. [Concomitant]
     Active Substance: LISINOPRIL
  12. METOCLOPRAMIDE HCL [Concomitant]
     Active Substance: METOCLOPRAMIDE HYDROCHLORIDE
  13. LIPITOR [Concomitant]
     Active Substance: ATORVASTATIN CALCIUM
  14. COLCRYS [Concomitant]
     Active Substance: COLCHICINE
  15. ASPIRIN 81 [Concomitant]
     Active Substance: ASPIRIN
  16. SPIRONOLACTONE. [Concomitant]
     Active Substance: SPIRONOLACTONE
  17. HYDRALAZINE HCL [Concomitant]
     Active Substance: HYDRALAZINE HYDROCHLORIDE
  18. AMBRISENTAN [Suspect]
     Active Substance: AMBRISENTAN
     Dosage: 10 MG, QD
     Route: 065
     Dates: end: 20160928
  19. TRAMADOL HCL [Concomitant]
     Active Substance: TRAMADOL HYDROCHLORIDE
  20. FLUTICASONE. [Concomitant]
     Active Substance: FLUTICASONE

REACTIONS (11)
  - Pulmonary arterial hypertension [Recovered/Resolved]
  - Product use issue [Unknown]
  - Cardiogenic shock [Unknown]
  - Left ventricular dysfunction [Unknown]
  - Cardiac failure congestive [Unknown]
  - Diabetes mellitus [Recovered/Resolved]
  - Dyspnoea [Recovered/Resolved]
  - Transfusion [Unknown]
  - Fluid retention [Recovered/Resolved]
  - Malaise [Unknown]
  - Sarcoidosis [Recovered/Resolved]

NARRATIVE: CASE EVENT DATE: 20160922
